FAERS Safety Report 6075291-4 (Version None)
Quarter: 2009Q1

REPORT INFORMATION
  Report Type: 
  Country: None (occurrence: None)
  Receive Date: 20090212
  Receipt Date: 20090204
  Transmission Date: 20090719
  Serious: Yes (Hospitalization, Other)
  Sender: FDA-Public Use
  Company Number: PHHY2009FI01190

PATIENT
  Sex: Male

DRUGS (2)
  1. ACLASTA [Suspect]
     Indication: OSTEOPOROSIS
     Dosage: UNK
     Dates: start: 20081001
  2. PROTELOS [Concomitant]

REACTIONS (13)
  - BACK PAIN [None]
  - DIARRHOEA [None]
  - HYPERHIDROSIS [None]
  - INFLUENZA LIKE ILLNESS [None]
  - LOOSE TOOTH [None]
  - MUSCULOSKELETAL STIFFNESS [None]
  - NECK PAIN [None]
  - OEDEMA PERIPHERAL [None]
  - PAIN IN JAW [None]
  - POSTURE ABNORMAL [None]
  - TOOTHACHE [None]
  - VISUAL ACUITY REDUCED [None]
  - WEIGHT DECREASED [None]
